FAERS Safety Report 15536131 (Version 2)
Quarter: 2018Q4

REPORT INFORMATION
  Report Type: Report from Study
  Country: AU (occurrence: AU)
  Receive Date: 20181022
  Receipt Date: 20181107
  Transmission Date: 20190205
  Serious: Yes (Hospitalization)
  Sender: FDA-Public Use
  Company Number: AU-VERTEX PHARMACEUTICALS-2018-007464

PATIENT
  Age: 17 Year
  Sex: Male

DRUGS (21)
  1. MAGMIN [Concomitant]
     Active Substance: MAGNESIUM ASPARTATE
     Dosage: 500 MG MORNING
     Route: 048
  2. ORKAMBI [Suspect]
     Active Substance: IVACAFTOR\LUMACAFTOR
     Indication: CYSTIC FIBROSIS
     Dosage: 2 DOSAGE FORM (200/125 MG EACH), BID
     Route: 048
     Dates: end: 2018
  3. DORNASE ALFA. [Concomitant]
     Active Substance: DORNASE ALFA
     Dosage: 2.5 MG, 2.5 ML, NIGHT
     Route: 055
  4. ORKAMBI [Suspect]
     Active Substance: IVACAFTOR\LUMACAFTOR
     Dosage: 2 DOSAGE FORM (200/125 MG EACH), BID
     Route: 048
     Dates: start: 20181019
  5. PENTA-VITE CHILDRENS VITAMINS WITH IRON [Concomitant]
     Dosage: 2.5 MILLILITER, QD
     Route: 048
  6. AZITHROMYCIN ANHYDROUS. [Concomitant]
     Active Substance: AZITHROMYCIN ANHYDROUS
     Dosage: 500 MG, M, W, F
     Route: 048
  7. ESOMEPRAZOLE. [Concomitant]
     Active Substance: ESOMEPRAZOLE MAGNESIUM
     Dosage: 20 MG, BID
     Route: 048
  8. SALBUTAMOL [Concomitant]
     Active Substance: ALBUTEROL
     Dosage: 100 MICROGRAM
     Route: 055
  9. SODIUM CHLORIDE. [Concomitant]
     Active Substance: SODIUM CHLORIDE
  10. TOBI [Concomitant]
     Active Substance: TOBRAMYCIN
     Dosage: 4 CAPSULES, BID
     Route: 055
  11. LEVEMIR [Concomitant]
     Active Substance: INSULIN DETEMIR
     Dosage: 35 UT, NIGHT
     Route: 058
  12. ORKAMBI [Suspect]
     Active Substance: IVACAFTOR\LUMACAFTOR
     Dosage: 1 DOSAGE FORM (200/125 MG EACH), BID
     Route: 048
     Dates: start: 20181016, end: 20181019
  13. TOCOPHEROL [Concomitant]
     Active Substance: TOCOPHEROL
     Dosage: 69MG/0.6 ML, EVENING
     Route: 048
  14. MANNITOL. [Concomitant]
     Active Substance: MANNITOL
     Dosage: 40 MG
     Route: 055
  15. VITAMIN K1 [Concomitant]
     Active Substance: PHYTONADIONE
     Dosage: 10 MG, TIW
     Route: 048
  16. POTASSIUM CHLORIDE. [Concomitant]
     Active Substance: POTASSIUM CHLORIDE
     Dosage: 14 MMOL/L, BID
     Route: 048
  17. TOBI [Concomitant]
     Active Substance: TOBRAMYCIN
     Dosage: 300 MG, BID
     Route: 055
  18. ENSURE [Concomitant]
     Active Substance: AMINO ACIDS\DEXTROSE\ELECTROLYTES NOS\SOYBEAN OIL\VITAMINS
  19. GLUCAGON. [Concomitant]
     Active Substance: GLUCAGON
     Dosage: 1 MG, PRN
     Route: 030
  20. BACTRIM [Concomitant]
     Active Substance: SULFAMETHOXAZOLE\TRIMETHOPRIM
     Dosage: 160 MG, BID
     Route: 048
  21. FLUOXETINE [Concomitant]
     Active Substance: FLUOXETINE HYDROCHLORIDE
     Dosage: 40 MG, QD
     Route: 048

REACTIONS (2)
  - Expired product administered [Recovered/Resolved]
  - Infective pulmonary exacerbation of cystic fibrosis [Not Recovered/Not Resolved]

NARRATIVE: CASE EVENT DATE: 2018
